FAERS Safety Report 10912178 (Version 1)
Quarter: 2015Q1

REPORT INFORMATION
  Report Type: Spontaneous
  Country: US (occurrence: US)
  Receive Date: 20150313
  Receipt Date: 20150313
  Transmission Date: 20150721
  Serious: Yes (Other)
  Sender: FDA-Public Use
  Company Number: US-CIPLA LTD.-2015US01769

PATIENT

DRUGS (4)
  1. PACLITAXEL. [Suspect]
     Active Substance: PACLITAXEL
     Indication: GERM CELL CANCER
     Dosage: 170 MG/M2, UNK, OVER 3 HOURS, DAY 1 OF A 14 DAY CYCLE
  2. OXALIPLATIN. [Suspect]
     Active Substance: OXALIPLATIN
     Indication: GERM CELL CANCER
     Dosage: 100 MG/M2, UNK, OVER 90 MIN, DAY 1 OF A 14 DAY CYCLE
  3. GEMCITABINE [Suspect]
     Active Substance: GEMCITABINE\GEMCITABINE HYDROCHLORIDE
     Indication: GERM CELL CANCER
     Dosage: 800 MG/M2, UNK, OVER 80 MIN, DAY 1 OF A 14 DAY CYCLE
  4. OXALIPLATIN. [Suspect]
     Active Substance: OXALIPLATIN
     Dosage: 125 MG/M2, UNK, IN CYCLE 2

REACTIONS (1)
  - Nervous system disorder [Unknown]
